FAERS Safety Report 5202548-9 (Version None)
Quarter: 2006Q4

REPORT INFORMATION
  Report Type: 
  Country: None (occurrence: None)
  Receive Date: 20061018
  Receipt Date: 20040910
  Transmission Date: 20070319
  Serious: Yes (Other)
  Sender: FDA-Public Use
  Company Number: PHEH2004US09755

PATIENT
  Age: 77 Year
  Sex: Male

DRUGS (1)
  1. ZOMETA [Suspect]
     Indication: HYPERCALCAEMIA OF MALIGNANCY
     Dosage: 4 MG, 2 DOES IN 5 DAYS, INTRAVENOUS
     Route: 042
     Dates: start: 20040901

REACTIONS (3)
  - BLOOD CALCIUM INCREASED [None]
  - DISEASE PROGRESSION [None]
  - OVERDOSE [None]
